FAERS Safety Report 11110641 (Version 4)
Quarter: 2015Q2

REPORT INFORMATION
  Report Type: Report from Study
  Country: ES (occurrence: ES)
  Receive Date: 20150513
  Receipt Date: 20150615
  Transmission Date: 20150821
  Serious: Yes (Other)
  Sender: FDA-Public Use
  Company Number: ES-GILEAD-2015-0147048

PATIENT
  Age: 54 Year
  Sex: Male
  Weight: 83 kg

DRUGS (4)
  1. EMTRICITABINE/RILPIVIRINE/TENOFOVIR DF [Suspect]
     Active Substance: EMTRICITABINE\RILPIVIRINE\TENOFOVIR DISOPROXIL FUMARATE
     Indication: HIV INFECTION
     Dosage: UNK
     Route: 065
     Dates: start: 20130715
  2. REYATAZ [Concomitant]
     Active Substance: ATAZANAVIR SULFATE
     Dosage: UNK
     Dates: start: 20051018, end: 20130715
  3. TRUVADA [Concomitant]
     Active Substance: EMTRICITABINE\TENOFOVIR DISOPROXIL FUMARATE
     Dosage: UNK
     Dates: start: 20051018, end: 20130715
  4. NORVIR [Concomitant]
     Active Substance: RITONAVIR
     Dosage: UNK
     Dates: start: 20051018, end: 20130715

REACTIONS (1)
  - Gynaecomastia [Recovered/Resolved]

NARRATIVE: CASE EVENT DATE: 20140715
